FAERS Safety Report 15707766 (Version 1)
Quarter: 2018Q4

REPORT INFORMATION
  Report Type: Spontaneous
  Country: US (occurrence: US)
  Receive Date: 20181211
  Receipt Date: 20181211
  Transmission Date: 20190205
  Serious: Yes (Death)
  Sender: FDA-Public Use
  Company Number: None

PATIENT
  Sex: Male

DRUGS (14)
  1. DEXAMETHASONE. [Concomitant]
     Active Substance: DEXAMETHASONE
  2. ONDANSETRON [Concomitant]
     Active Substance: ONDANSETRON
  3. ALLOPURINOL. [Concomitant]
     Active Substance: ALLOPURINOL
  4. ZANTAC [Concomitant]
     Active Substance: RANITIDINE HYDROCHLORIDE
  5. ATIVAN [Concomitant]
     Active Substance: LORAZEPAM
  6. ZARXIO [Suspect]
     Active Substance: FILGRASTIM-SNDZ
     Indication: PRODUCT USED FOR UNKNOWN INDICATION
     Route: 058
     Dates: start: 20180807
  7. FLUCONAZOLE. [Concomitant]
     Active Substance: FLUCONAZOLE
  8. HYDROMORPHONE [Concomitant]
     Active Substance: HYDROMORPHONE
  9. LOVENOX [Concomitant]
     Active Substance: ENOXAPARIN SODIUM
  10. PROCHLOROPERAZINE [Concomitant]
     Active Substance: PROCHLORPERAZINE
  11. LIALDA [Concomitant]
     Active Substance: MESALAMINE
  12. LIDOCAINE. [Concomitant]
     Active Substance: LIDOCAINE
  13. METHOCARBAMOL. [Concomitant]
     Active Substance: METHOCARBAMOL
  14. ZOVIRAX [Concomitant]
     Active Substance: ACYCLOVIR

REACTIONS (1)
  - Death [None]
